FAERS Safety Report 20574848 (Version 2)
Quarter: 2022Q1

REPORT INFORMATION
  Report Type: Spontaneous
  Country: US (occurrence: None)
  Receive Date: 20220310
  Receipt Date: 20220313
  Transmission Date: 20220423
  Serious: Yes (Other)
  Sender: FDA-Public Use
  Company Number: US-ROCHE-3043360

PATIENT
  Age: 62 Year
  Sex: Female
  Weight: 78.1 kg

DRUGS (10)
  1. ALECENSA [Suspect]
     Active Substance: ALECTINIB HYDROCHLORIDE
     Indication: Non-small cell lung cancer
     Route: 048
     Dates: start: 20220128
  2. ASPIRIN [Concomitant]
     Active Substance: ASPIRIN
  3. ATORVASTATIN [Concomitant]
     Active Substance: ATORVASTATIN
  4. NORCO [Concomitant]
     Active Substance: ACETAMINOPHEN\HYDROCODONE BITARTRATE
  5. ATIVAN [Concomitant]
     Active Substance: LORAZEPAM
  6. LOSARTAN [Concomitant]
     Active Substance: LOSARTAN
  7. OMEPRAZOLE [Concomitant]
     Active Substance: OMEPRAZOLE
  8. COMPAZINE [Concomitant]
     Active Substance: PROCHLORPERAZINE MALEATE
  9. HYDROCHLOROTHIAZIDE\TRIAMTERENE [Concomitant]
     Active Substance: HYDROCHLOROTHIAZIDE\TRIAMTERENE
  10. ARIMIDEX [Concomitant]
     Active Substance: ANASTROZOLE

REACTIONS (1)
  - Haemolysis [Unknown]

NARRATIVE: CASE EVENT DATE: 20220301
